FAERS Safety Report 8483217-9 (Version None)
Quarter: 2012Q3

REPORT INFORMATION
  Report Type: 
  Country: None (occurrence: None)
  Receive Date: 20120702
  Receipt Date: 20120620
  Transmission Date: 20120928
  Serious: Yes (Hospitalization, Other)
  Sender: FDA-Public Use
  Company Number: JP-VERTEX PHARMACEUTICALS INC.-AE-2012-009358

PATIENT
  Age: 65 Year
  Sex: Female

DRUGS (21)
  1. RIBAVIRIN [Concomitant]
     Route: 048
     Dates: start: 20120522, end: 20120529
  2. ZETIA [Concomitant]
     Route: 048
  3. URSO 250 [Concomitant]
     Route: 048
  4. LENDORMIN [Concomitant]
     Route: 048
  5. RIBAVIRIN [Concomitant]
     Route: 048
     Dates: start: 20120508, end: 20120521
  6. POTASSIUM CHLORIDE [Concomitant]
     Route: 051
     Dates: start: 20120505, end: 20120508
  7. ALLOPURINOL [Concomitant]
     Route: 048
     Dates: start: 20120508
  8. ESTRIEL [Concomitant]
     Route: 048
  9. LANSOPRAZOLE [Concomitant]
     Route: 048
  10. LOXONIN [Concomitant]
     Route: 048
  11. ANTEBATE: OINTMENT [Concomitant]
     Route: 061
  12. LACTEC [Concomitant]
     Route: 051
     Dates: start: 20120508, end: 20120529
  13. TELAVIC (TELAPREVIR) [Suspect]
     Indication: HEPATITIS C
     Route: 048
     Dates: start: 20120501, end: 20120529
  14. LOSARTAN POTASSIUM [Concomitant]
     Route: 048
  15. ALDACTONE [Concomitant]
     Route: 048
     Dates: start: 20120605
  16. MAGMITT [Concomitant]
     Route: 048
  17. ALLEGRA [Concomitant]
     Route: 048
     Dates: start: 20120504
  18. GASMOTIN [Concomitant]
     Route: 048
     Dates: start: 20120605
  19. RIBAVIRIN [Concomitant]
     Indication: HEPATITIS C
     Route: 048
     Dates: start: 20120502, end: 20120507
  20. PEGINTERFERON ALFA-2B [Concomitant]
     Indication: HEPATITIS C
     Route: 058
     Dates: start: 20120502, end: 20120529
  21. POTASSIUM CHLORIDE [Concomitant]
     Route: 051
     Dates: start: 20120508, end: 20120529

REACTIONS (3)
  - RENAL IMPAIRMENT [None]
  - DECREASED APPETITE [None]
  - HERPES ZOSTER [None]
